FAERS Safety Report 18320617 (Version 1)
Quarter: 2020Q3

REPORT INFORMATION
  Report Type: Report from Study
  Country: None (occurrence: US)
  Receive Date: 20200928
  Receipt Date: 20200928
  Transmission Date: 20201103
  Serious: Yes (Hospitalization)
  Sender: FDA-Public Use
  Company Number: US-ABBVIE-20K-163-3349034-00

PATIENT
  Age: 64 Year
  Sex: Male
  Weight: 59.02 kg

DRUGS (2)
  1. HUMIRA [Suspect]
     Active Substance: ADALIMUMAB
     Indication: CROHN^S DISEASE
     Route: 058
     Dates: start: 20200304
  2. MYRBETRIQ [Concomitant]
     Active Substance: MIRABEGRON
     Indication: PROSTATOMEGALY

REACTIONS (18)
  - Proctalgia [Unknown]
  - Bladder dilatation [Unknown]
  - Gastrointestinal wall thickening [Unknown]
  - Skin induration [Unknown]
  - Skin oedema [Unknown]
  - Mean cell volume increased [Unknown]
  - Foreign body in skin or subcutaneous tissue [Unknown]
  - Blood glucose increased [Unknown]
  - Anal fistula infection [Recovering/Resolving]
  - Colitis ulcerative [Unknown]
  - Alanine aminotransferase increased [Unknown]
  - Anal fistula [Unknown]
  - Perirectal abscess [Unknown]
  - Skin hypertrophy [Unknown]
  - Gastrointestinal oedema [Unknown]
  - Mean platelet volume increased [Unknown]
  - Glomerular filtration rate increased [Unknown]
  - Flatulence [Unknown]

NARRATIVE: CASE EVENT DATE: 20200328
